FAERS Safety Report 9385014 (Version 1)
Quarter: 2013Q3

REPORT INFORMATION
  Report Type: Spontaneous
  Country: US (occurrence: US)
  Receive Date: 20130705
  Receipt Date: 20130705
  Transmission Date: 20140515
  Serious: No
  Sender: FDA-Public Use
  Company Number: US-GLAXOSMITHKLINE-A1024389A

PATIENT
  Age: 19 Year
  Sex: Female

DRUGS (10)
  1. BENLYSTA [Suspect]
     Indication: SYSTEMIC LUPUS ERYTHEMATOSUS
     Route: 042
     Dates: start: 201111
  2. HYDROXYCHLOROQUINE [Concomitant]
  3. CELLCEPT [Concomitant]
  4. PLAQUENIL [Concomitant]
  5. ENALAPRIL [Concomitant]
  6. BABY ASPIRIN [Concomitant]
  7. PREDNISONE [Concomitant]
  8. PREVACID [Concomitant]
  9. VIT D [Concomitant]
  10. NAPROXEN [Concomitant]

REACTIONS (1)
  - Cell marker decreased [Not Recovered/Not Resolved]
